FAERS Safety Report 18648999 (Version 1)
Quarter: 2020Q4

REPORT INFORMATION
  Report Type: Spontaneous
  Country: US (occurrence: US)
  Receive Date: 20201222
  Receipt Date: 20201222
  Transmission Date: 20210114
  Serious: Yes (Other)
  Sender: FDA-Public Use
  Company Number: US-009507513-2012USA009099

PATIENT
  Sex: Female

DRUGS (3)
  1. FOSAMAX PLUS D [Suspect]
     Active Substance: ALENDRONATE SODIUM\CHOLECALCIFEROL
     Indication: PRODUCT USED FOR UNKNOWN INDICATION
     Dosage: AS PRESCRIBED AND IN A FORESEEABLE MANNER
     Route: 048
     Dates: start: 20050104, end: 201202
  2. FOSAMAX [Suspect]
     Active Substance: ALENDRONATE SODIUM
     Dosage: AS PRESCRIBED AND IN A FORESEEABLE MANNER
     Route: 048
     Dates: start: 20050104, end: 201202
  3. FOSAMAX [Suspect]
     Active Substance: ALENDRONATE SODIUM
     Indication: PRODUCT USED FOR UNKNOWN INDICATION
     Dosage: AS PRESCRIBED AND IN A FORESEEABLE MANNER
     Route: 048
     Dates: start: 20050104, end: 201202

REACTIONS (2)
  - Incorrect product administration duration [Unknown]
  - Femur fracture [Unknown]

NARRATIVE: CASE EVENT DATE: 20050801
